FAERS Safety Report 7479230-0 (Version None)
Quarter: 2011Q2

REPORT INFORMATION
  Report Type: 
  Country: None (occurrence: None)
  Receive Date: 20110513
  Receipt Date: 20110420
  Transmission Date: 20111010
  Serious: Yes (Hospitalization)
  Sender: FDA-Public Use
  Company Number: B0686917A

PATIENT
  Sex: Male
  Weight: 71 kg

DRUGS (7)
  1. ASPIRIN [Concomitant]
     Route: 048
     Dates: start: 20100505
  2. CARVEDILOL [Concomitant]
     Route: 048
     Dates: start: 20100505
  3. PERINDOPRIL ERBUMINE [Concomitant]
     Route: 048
     Dates: start: 20100505
  4. COMBIVIR [Suspect]
     Indication: HIV INFECTION
     Dosage: 450MG TWICE PER DAY
     Route: 048
     Dates: start: 20060308
  5. EZETIMIBE [Concomitant]
     Route: 048
     Dates: start: 20101002
  6. CIPROFIBRATE [Concomitant]
     Route: 048
     Dates: start: 20100605
  7. SELZENTRY [Suspect]
     Indication: HIV INFECTION
     Dosage: 300MG TWICE PER DAY
     Route: 048
     Dates: start: 20060308

REACTIONS (1)
  - NEOPLASM [None]
